FAERS Safety Report 8123998-7 (Version None)
Quarter: 2012Q1

REPORT INFORMATION
  Report Type: 
  Country: None (occurrence: None)
  Receive Date: 20120209
  Receipt Date: 20120130
  Transmission Date: 20120608
  Serious: Yes (Other)
  Sender: FDA-Public Use
  Company Number: GB-JNJFOC-20120200867

PATIENT
  Sex: Female
  Weight: 1.18 kg

DRUGS (1)
  1. XARELTO [Suspect]
     Indication: FOETAL EXPOSURE DURING PREGNANCY
     Route: 064
     Dates: start: 20110228, end: 20110406

REACTIONS (2)
  - FOETAL GROWTH RESTRICTION [None]
  - PREMATURE BABY [None]
